FAERS Safety Report 11128888 (Version 1)
Quarter: 2015Q2

REPORT INFORMATION
  Report Type: Spontaneous
  Country: US (occurrence: US)
  Receive Date: 20150521
  Receipt Date: 20150521
  Transmission Date: 20150821
  Serious: No
  Sender: FDA-Public Use
  Company Number: US-BAYER-2015-253861

PATIENT
  Age: 82 Year
  Sex: Male
  Weight: 95.24 kg

DRUGS (1)
  1. ALEVE [Suspect]
     Active Substance: NAPROXEN SODIUM
     Indication: PAIN
     Dosage: 1 DF, BID
     Route: 048
     Dates: start: 201502

REACTIONS (2)
  - Incorrect drug administration duration [None]
  - Medication error [None]

NARRATIVE: CASE EVENT DATE: 201502
